FAERS Safety Report 10006328 (Version 1)
Quarter: 2014Q1

REPORT INFORMATION
  Report Type: Spontaneous
  Country: US (occurrence: US)
  Receive Date: 20140313
  Receipt Date: 20140313
  Transmission Date: 20141002
  Serious: Yes (Hospitalization)
  Sender: FDA-Public Use
  Company Number: US-BAYER-2014-037772

PATIENT
  Age: 32 Year
  Sex: Female
  Weight: 108.84 kg

DRUGS (4)
  1. YASMIN [Suspect]
  2. RITALIN [Concomitant]
     Dosage: UNK
     Route: 048
     Dates: start: 20050912
  3. WELLBUTRIN [Concomitant]
     Dosage: UNK
     Route: 048
     Dates: start: 20050912
  4. NAPROXEN [Concomitant]
     Dosage: UNK
     Route: 048
     Dates: start: 20050912

REACTIONS (3)
  - Pulmonary embolism [Recovered/Resolved]
  - Thrombophlebitis superficial [Recovered/Resolved]
  - Deep vein thrombosis [Recovered/Resolved]
